FAERS Safety Report 7399342-X (Version None)
Quarter: 2011Q1

REPORT INFORMATION
  Report Type: 
  Country: None (occurrence: None)
  Receive Date: 20110328
  Receipt Date: 20110321
  Transmission Date: 20110831
  Serious: No
  Sender: FDA-Public Use
  Company Number: DSA_44999_2011

PATIENT
  Sex: Female

DRUGS (4)
  1. EUCREAS [Concomitant]
  2. QUILONUM [Concomitant]
  3. BUPROPION HYDROCHLORIDE (WELLBUTRIN XL) [Suspect]
     Indication: PRODUCT USED FOR UNKNOWN INDICATION
     Dosage: 150 MG, QD, ORAL
     Route: 048
     Dates: start: 20080101
  4. TRIMIPRAMINE MALEATE [Concomitant]

REACTIONS (2)
  - BLOOD GLUCOSE INCREASED [None]
  - DIZZINESS [None]
